FAERS Safety Report 6451487-4 (Version None)
Quarter: 2009Q4

REPORT INFORMATION
  Report Type: 
  Country: None (occurrence: None)
  Receive Date: 20091123
  Receipt Date: 20090514
  Transmission Date: 20100525
  Serious: No
  Sender: FDA-Public Use
  Company Number: US-BRISTOL-MYERS SQUIBB COMPANY-14630776

PATIENT
  Age: 75 Year
  Sex: Male

DRUGS (1)
  1. AVALIDE [Suspect]
     Dosage: 1 DOSAGEFORM = 150/12.5 (UNITS NOT MENTIONED)

REACTIONS (3)
  - ASTHENIA [None]
  - DYSPHAGIA [None]
  - SWELLING FACE [None]
